FAERS Safety Report 11848489 (Version 12)
Quarter: 2019Q2

REPORT INFORMATION
  Report Type: Report from Study
  Country: ZA (occurrence: ZA)
  Receive Date: 20151218
  Receipt Date: 20190624
  Transmission Date: 20190711
  Serious: Yes (Hospitalization)
  Sender: FDA-Public Use
  Company Number: ZA-ROCHE-1678324

PATIENT
  Age: 49 Year
  Sex: Female

DRUGS (22)
  1. ESOMEPRAZOLE. [Concomitant]
     Active Substance: ESOMEPRAZOLE MAGNESIUM
     Indication: PRODUCT USED FOR UNKNOWN INDICATION
     Route: 065
  2. DAZIT [Concomitant]
     Active Substance: DESLORATADINE
     Indication: URTICARIA
     Route: 065
  3. LYRICA [Concomitant]
     Active Substance: PREGABALIN
     Indication: GUILLAIN-BARRE SYNDROME
     Route: 065
  4. XOLAIR [Suspect]
     Active Substance: OMALIZUMAB
     Dosage: 450 MG, UNK
     Route: 058
     Dates: start: 20161206
  5. SOLU-CORTEF [Concomitant]
     Active Substance: HYDROCORTISONE SODIUM SUCCINATE
     Indication: ASTHMA
     Route: 042
  6. MAGNESIUM [Concomitant]
     Active Substance: MAGNESIUM
     Indication: LONG QT SYNDROME
     Dosage: 2 DF, BID
     Route: 065
  7. SIMVASTATIN. [Concomitant]
     Active Substance: SIMVASTATIN
     Indication: LONG QT SYNDROME
     Dosage: 10 OT, QHS
     Route: 065
  8. XOLAIR [Suspect]
     Active Substance: OMALIZUMAB
     Indication: CHRONIC SPONTANEOUS URTICARIA
     Dosage: 3 DF, UNK
     Route: 058
     Dates: start: 20151208
  9. COMBIVENT [Concomitant]
     Active Substance: ALBUTEROL SULFATE\IPRATROPIUM BROMIDE
     Indication: PRODUCT USED FOR UNKNOWN INDICATION
     Route: 065
  10. VITAMIN C [Concomitant]
     Active Substance: ASCORBIC ACID
     Indication: PRODUCT USED FOR UNKNOWN INDICATION
     Dosage: UNK
     Route: 065
  11. OXYGEN. [Concomitant]
     Active Substance: OXYGEN
     Indication: PRODUCT USED FOR UNKNOWN INDICATION
     Route: 065
  12. AMINOPHYLLINE. [Concomitant]
     Active Substance: AMINOPHYLLINE
     Indication: ASTHMA
     Route: 042
  13. VERAHEXAL [Concomitant]
     Active Substance: VERAPAMIL HYDROCHLORIDE
     Indication: LONG QT SYNDROME
     Dosage: 0.5 DF, (2 PER DAY)
     Route: 065
  14. XOLAIR [Suspect]
     Active Substance: OMALIZUMAB
     Indication: ASTHMA
     Dosage: 450 MG, UNK
     Route: 058
     Dates: start: 20151109
  15. XOLAIR [Suspect]
     Active Substance: OMALIZUMAB
     Route: 058
     Dates: start: 20170106
  16. ULTIMAG [Concomitant]
     Active Substance: MAGNESIUM CHLORIDE\ZINC OXIDE
     Indication: PRODUCT USED FOR UNKNOWN INDICATION
     Route: 065
  17. SLOW K [Concomitant]
     Active Substance: POTASSIUM CHLORIDE
     Indication: PRODUCT USED FOR UNKNOWN INDICATION
     Route: 065
  18. FORVENT [Concomitant]
     Active Substance: TIOTROPIUM BROMIDE
     Indication: PRODUCT USED FOR UNKNOWN INDICATION
     Route: 065
  19. XYZAL [Concomitant]
     Active Substance: LEVOCETIRIZINE DIHYDROCHLORIDE
     Indication: URTICARIA
     Route: 065
  20. EPIPEN [Concomitant]
     Active Substance: EPINEPHRINE
     Indication: URTICARIA
     Dosage: UNK UNK, PRN
     Route: 065
  21. XOLAIR [Suspect]
     Active Substance: OMALIZUMAB
     Route: 058
     Dates: start: 20170214
  22. SINGULAIR [Concomitant]
     Active Substance: MONTELUKAST SODIUM
     Indication: PRODUCT USED FOR UNKNOWN INDICATION
     Route: 065

REACTIONS (26)
  - Cough [Recovering/Resolving]
  - Axillary pain [Unknown]
  - Pruritus [Unknown]
  - Pain [Recovering/Resolving]
  - Arthralgia [Recovering/Resolving]
  - Dyspnoea [Recovering/Resolving]
  - Asthma [Recovering/Resolving]
  - Blood pressure fluctuation [Recovering/Resolving]
  - Headache [Recovering/Resolving]
  - Chest discomfort [Recovering/Resolving]
  - Arthralgia [Not Recovered/Not Resolved]
  - Heart rate irregular [Recovering/Resolving]
  - Paraesthesia [Recovering/Resolving]
  - Rash [Recovered/Resolved]
  - Productive cough [Recovering/Resolving]
  - Hypersensitivity [Recovering/Resolving]
  - Joint stiffness [Recovering/Resolving]
  - Myalgia [Not Recovered/Not Resolved]
  - Oropharyngeal pain [Unknown]
  - Burning sensation [Recovering/Resolving]
  - Abdominal pain upper [Recovering/Resolving]
  - Blood pressure decreased [Recovering/Resolving]
  - Dyspepsia [Recovering/Resolving]
  - Chest pain [Recovering/Resolving]
  - Wheezing [Recovering/Resolving]
  - Fatigue [Recovering/Resolving]

NARRATIVE: CASE EVENT DATE: 20151208
